FAERS Safety Report 19657330 (Version 1)
Quarter: 2021Q3

REPORT INFORMATION
  Report Type: Report from Study
  Country: US (occurrence: US)
  Receive Date: 20210804
  Receipt Date: 20210804
  Transmission Date: 20211014
  Serious: Yes (Hospitalization)
  Sender: FDA-Public Use
  Company Number: US-TG THERAPEUTICS INC.-TGT001867

PATIENT
  Age: 67 Year
  Sex: Male
  Weight: 74 kg

DRUGS (9)
  1. UMBRALISIB [Suspect]
     Active Substance: UMBRALISIB
     Dosage: 800 UNK
     Dates: start: 20210220
  2. MULTIVITAMINUM [Concomitant]
     Active Substance: VITAMINS
     Indication: PRODUCT USED FOR UNKNOWN INDICATION
     Dosage: UNK
     Dates: start: 20200215
  3. ZOFRAN [Concomitant]
     Active Substance: ONDANSETRON HYDROCHLORIDE
     Indication: PRODUCT USED FOR UNKNOWN INDICATION
     Dosage: UNK
     Dates: start: 20200221
  4. UBLITUXIMAB [Suspect]
     Active Substance: UBLITUXIMAB
     Indication: CHRONIC LYMPHOCYTIC LEUKAEMIA
     Dosage: 150 MILLIGRAM
     Dates: start: 20200219
  5. VENETOCLAX. [Suspect]
     Active Substance: VENETOCLAX
     Dosage: 400 UNK
     Dates: start: 20210220
  6. ACYCLOVIR [ACICLOVIR SODIUM] [Concomitant]
     Active Substance: ACYCLOVIR
     Indication: PRODUCT USED FOR UNKNOWN INDICATION
     Dosage: UNK
     Dates: start: 20200219
  7. VENETOCLAX. [Suspect]
     Active Substance: VENETOCLAX
     Indication: CHRONIC LYMPHOCYTIC LEUKAEMIA
     Dosage: 400 MILLIGRAM
     Dates: start: 20200512, end: 20210218
  8. BACTRIM [Concomitant]
     Active Substance: SULFAMETHOXAZOLE\TRIMETHOPRIM
     Indication: PRODUCT USED FOR UNKNOWN INDICATION
     Dosage: UNK
     Dates: start: 20200218
  9. UMBRALISIB [Suspect]
     Active Substance: UMBRALISIB
     Indication: CHRONIC LYMPHOCYTIC LEUKAEMIA
     Dosage: 800 MILLIGRAM
     Dates: start: 20200219, end: 20210218

REACTIONS (2)
  - Hypertension [Recovered/Resolved]
  - Chest pain [Recovered/Resolved]

NARRATIVE: CASE EVENT DATE: 20210218
